FAERS Safety Report 11181103 (Version 2)
Quarter: 2015Q3

REPORT INFORMATION
  Report Type: Spontaneous
  Country: US (occurrence: US)
  Receive Date: 20150611
  Receipt Date: 20150721
  Transmission Date: 20151125
  Serious: Yes (Death, Other)
  Sender: FDA-Public Use
  Company Number: US-AMGEN-USASP2015055968

PATIENT
  Age: 79 Year
  Sex: Female
  Weight: 50.79 kg

DRUGS (21)
  1. PANTOPRAZOLE SODIUM. [Concomitant]
     Active Substance: PANTOPRAZOLE SODIUM
     Dosage: 40 MG, QD
     Route: 048
  2. PROLIA [Suspect]
     Active Substance: DENOSUMAB
     Indication: OSTEOPOROSIS POSTMENOPAUSAL
     Dosage: UNK, Q6MO
     Route: 058
     Dates: start: 20121121, end: 20150220
  3. BUDESONIDE. [Concomitant]
     Active Substance: BUDESONIDE
     Dosage: 0.25 MCG/2 ML, BID 1 VAIL TWICE A DAY
  4. PROAIR HFA [Concomitant]
     Active Substance: ALBUTEROL SULFATE
     Dosage: 90 MUG, INHALE 2 PUFFS AS NEDDED EVERY FOUR HOURS
  5. CELEBREX [Concomitant]
     Active Substance: CELECOXIB
     Dosage: 200 MG, QD
     Route: 048
     Dates: start: 20111116
  6. ALBUTEROL                          /00139501/ [Concomitant]
     Active Substance: ALBUTEROL
     Indication: DYSPNOEA
     Dosage: 2.5 MG PER 3 ML
     Dates: start: 20141024
  7. MUCINEX [Concomitant]
     Active Substance: GUAIFENESIN
     Dosage: 400 MG, BID
     Route: 048
  8. PREDNISONE. [Concomitant]
     Active Substance: PREDNISONE
     Dosage: 5 MG, QD
     Route: 048
     Dates: start: 20101102
  9. POTASSIUM CHLORIDE. [Concomitant]
     Active Substance: POTASSIUM CHLORIDE
     Dosage: 10 MEQ, BID
     Route: 048
  10. ATIVAN [Concomitant]
     Active Substance: LORAZEPAM
     Indication: ANXIETY
     Dosage: 0.5 MG, UNK
     Route: 048
     Dates: start: 20150327
  11. MONTELUKAST SODIUM. [Concomitant]
     Active Substance: MONTELUKAST SODIUM
     Dosage: 10 MG, QD
     Route: 048
  12. BROVANA [Concomitant]
     Active Substance: ARFORMOTEROL TARTRATE
     Dosage: 15 MCG/2ML INHALATION
  13. FLUTICASONE PROPIONATE. [Concomitant]
     Active Substance: FLUTICASONE PROPIONATE
     Dosage: 50 MUG, QD 1  SPRAY IN EACH NOSTRIL
     Route: 045
  14. VITAMIN D3 [Concomitant]
     Active Substance: CHOLECALCIFEROL
     Dosage: 2000 UNK, QD
     Route: 048
  15. MORPHINE SULFATE. [Concomitant]
     Active Substance: MORPHINE SULFATE
     Dosage: 20 MG/ML, EVERY TWO HOUR
     Route: 048
     Dates: start: 20101102
  16. CARDIAZEM                          /00489701/ [Concomitant]
  17. MULTIVITAMINS [Concomitant]
     Active Substance: VITAMINS
     Route: 048
  18. SPIRIVA [Concomitant]
     Active Substance: TIOTROPIUM BROMIDE MONOHYDRATE
     Dosage: 1 CAP, QD INHALATION
  19. SINGULAIR [Concomitant]
     Active Substance: MONTELUKAST SODIUM
     Dosage: 10 MG, QD
     Route: 048
  20. FUROSEMIDE. [Concomitant]
     Active Substance: FUROSEMIDE
     Dosage: 20 MG , 2 TABS EVERY OTHER DAY
     Route: 048
     Dates: start: 20131218
  21. DILTIAZEM HYDROCHLORIDE EXTENDED RELEASE [Concomitant]
     Active Substance: DILTIAZEM HYDROCHLORIDE
     Dosage: 120 CAP ER 24 HOUR
     Route: 048
     Dates: start: 20140519

REACTIONS (35)
  - Bronchiectasis [Fatal]
  - Cervical spinal stenosis [Unknown]
  - Hypertension [Unknown]
  - Asthma [Unknown]
  - Hyperlipidaemia [Unknown]
  - Pulmonary hypertension [Unknown]
  - Peptic ulcer [Unknown]
  - Atrial fibrillation [Unknown]
  - Early satiety [Recovering/Resolving]
  - Hypertensive heart disease [Unknown]
  - Asthenia [Unknown]
  - Chronic obstructive pulmonary disease [Fatal]
  - Hyperglycaemia [Unknown]
  - Laceration [Recovering/Resolving]
  - Hyperthyroidism [Unknown]
  - Activities of daily living impaired [Unknown]
  - Back pain [Unknown]
  - Vertebral foraminal stenosis [Unknown]
  - Wound [Recovering/Resolving]
  - Syncope [Unknown]
  - Fatigue [Unknown]
  - Osteoarthritis [Unknown]
  - Oedema [Unknown]
  - Gait disturbance [Unknown]
  - Supraventricular tachycardia [Unknown]
  - Cardiac valve disease [Unknown]
  - Nausea [Recovered/Resolved]
  - Anaemia [Unknown]
  - Intervertebral disc degeneration [Unknown]
  - Insomnia [Unknown]
  - Pleural effusion [Unknown]
  - Orthostatic hypotension [Unknown]
  - Mental status changes [Recovered/Resolved]
  - Hypokalaemia [Unknown]
  - Right ventricular failure [Unknown]

NARRATIVE: CASE EVENT DATE: 20130227
